FAERS Safety Report 9340972 (Version 1)
Quarter: 2013Q2

REPORT INFORMATION
  Report Type: Spontaneous
  Country: CH (occurrence: CH)
  Receive Date: 20130531
  Receipt Date: 20130531
  Transmission Date: 20140414
  Serious: Yes (Hospitalization)
  Sender: FDA-Public Use
  Company Number: 2013036165

PATIENT
  Age: 5 Year
  Sex: Female

DRUGS (2)
  1. PRIVIGEN [Suspect]
     Indication: KAWASAKI^S DISEASE
     Route: 041
     Dates: start: 20130423, end: 20130423
  2. ASPIRIN (ACETYLSALICYLIC ACID) [Suspect]
     Indication: KAWASAKI^S DISEASE
     Dosage: 400 MG 1X FOR 6 HOURS.
     Route: 042
     Dates: start: 20130423, end: 20130428

REACTIONS (2)
  - Haemolysis [None]
  - Coombs direct test positive [None]
